FAERS Safety Report 8334243-1 (Version None)
Quarter: 2012Q2

REPORT INFORMATION
  Report Type: 
  Country: None (occurrence: None)
  Receive Date: 20120503
  Receipt Date: 20120426
  Transmission Date: 20120825
  Serious: Yes (Other)
  Sender: FDA-Public Use
  Company Number: GR-GLAXOSMITHKLINE-B0799286A

PATIENT
  Age: 43 Year
  Sex: Female
  Weight: 75 kg

DRUGS (7)
  1. ONDANSETRON [Suspect]
     Indication: VOMITING
     Route: 065
  2. BROMAZEPAM [Concomitant]
     Route: 048
  3. PROPOFOL [Concomitant]
     Route: 065
  4. DROPERIDOL [Suspect]
     Indication: VOMITING
     Route: 065
  5. PANTOPRAZOLE [Concomitant]
     Route: 065
  6. MIDAZOLAM [Concomitant]
     Route: 065
  7. REMIFENTANIL [Suspect]
     Indication: ANAESTHESIA
     Route: 042

REACTIONS (3)
  - MUSCULOSKELETAL STIFFNESS [None]
  - TRISMUS [None]
  - DYSPNOEA [None]
